FAERS Safety Report 18145702 (Version 5)
Quarter: 2020Q4

REPORT INFORMATION
  Report Type: Report from Study
  Country: None (occurrence: CO)
  Receive Date: 20200813
  Receipt Date: 20201109
  Transmission Date: 20210113
  Serious: Yes (Hospitalization, Other)
  Sender: FDA-Public Use
  Company Number: CO-ABBVIE-20K-036-3523628-00

PATIENT
  Sex: Female
  Weight: 60 kg

DRUGS (2)
  1. ZEMPLAR [Suspect]
     Active Substance: PARICALCITOL
     Indication: HYPERPARATHYROIDISM SECONDARY
     Dosage: POST DIALYSIS
     Route: 048
     Dates: start: 20150130, end: 20200314
  2. ZEMPLAR [Suspect]
     Active Substance: PARICALCITOL
     Indication: CHRONIC KIDNEY DISEASE
     Route: 048
     Dates: start: 2020, end: 20201001

REACTIONS (31)
  - Back pain [Recovering/Resolving]
  - Pleural effusion [Recovering/Resolving]
  - Peritonitis [Recovering/Resolving]
  - Traumatic lung injury [Recovering/Resolving]
  - Phlebitis [Recovering/Resolving]
  - Bone pain [Recovering/Resolving]
  - Cough [Recovered/Resolved]
  - Cholelithiasis [Recovering/Resolving]
  - Haemorrhagic disorder [Recovering/Resolving]
  - Uterine leiomyoma [Recovering/Resolving]
  - Abdominal pain [Recovering/Resolving]
  - Mobility decreased [Recovering/Resolving]
  - Fungal infection [Recovering/Resolving]
  - Gallbladder disorder [Recovering/Resolving]
  - Device issue [Recovering/Resolving]
  - Vomiting [Recovering/Resolving]
  - COVID-19 [Recovering/Resolving]
  - Thyroid mass [Recovering/Resolving]
  - Dehydration [Recovering/Resolving]
  - Cough [Unknown]
  - Cardiac disorder [Recovering/Resolving]
  - Tracheal injury [Recovering/Resolving]
  - Choking [Recovering/Resolving]
  - Cyanosis [Recovering/Resolving]
  - Cough [Recovered/Resolved]
  - Headache [Recovering/Resolving]
  - Tachycardia [Recovering/Resolving]
  - Hypoxia [Recovering/Resolving]
  - Weight decreased [Recovering/Resolving]
  - Cough [Recovering/Resolving]
  - Dysphonia [Recovering/Resolving]

NARRATIVE: CASE EVENT DATE: 2015
